FAERS Safety Report 9426742 (Version 1)
Quarter: 2013Q3

REPORT INFORMATION
  Report Type: Spontaneous
  Country: US (occurrence: US)
  Receive Date: 20130730
  Receipt Date: 20130730
  Transmission Date: 20140515
  Serious: No
  Sender: FDA-Public Use
  Company Number: US-SANOFI-AVENTIS-2012SA057751

PATIENT
  Sex: Female
  Weight: 75 kg

DRUGS (15)
  1. AMBIEN CR [Suspect]
     Indication: SLEEP DISORDER
     Route: 048
     Dates: start: 2009, end: 20120812
  2. ZOLPIDEM TARTRATE EXTENDED RELEASE - WINTHROP [Suspect]
     Indication: SLEEP DISORDER
     Route: 048
     Dates: start: 20120813, end: 20120817
  3. TYLENOL [Interacting]
     Route: 065
  4. ACETYLSALICYLIC ACID [Interacting]
     Route: 065
  5. MELOXICAM [Interacting]
     Route: 065
  6. DIPHENHYDRAMINE [Concomitant]
  7. MELATONIN [Concomitant]
     Dosage: SLOW RELEASE
  8. ESTROGENS CONJUGATED [Concomitant]
  9. PROVERA [Concomitant]
  10. BUPRENORPHINE [Concomitant]
  11. LOVASTATIN [Concomitant]
  12. FUROSEMIDE [Concomitant]
  13. POTASSIUM CHLORIDE [Concomitant]
  14. THYROXIN [Concomitant]
  15. FOSAMAX [Concomitant]

REACTIONS (6)
  - Oropharyngeal pain [Unknown]
  - Nasopharyngitis [Unknown]
  - Middle insomnia [Recovered/Resolved]
  - Drug interaction [Unknown]
  - Drug ineffective [Unknown]
  - Incorrect drug administration duration [Unknown]
